FAERS Safety Report 25768924 (Version 1)
Quarter: 2025Q3

REPORT INFORMATION
  Report Type: Spontaneous
  Country: EU (occurrence: EU)
  Receive Date: 20250905
  Receipt Date: 20250905
  Transmission Date: 20251020
  Serious: Yes (Hospitalization, Other)
  Sender: GE HEALTHCARE
  Company Number: EU-SAHLMAH-SU-2025-29

PATIENT
  Age: 53 Year
  Sex: Male
  Weight: 111 kg

DRUGS (3)
  1. FLUDEOXYGLUCOSE F-18 [Suspect]
     Active Substance: FLUDEOXYGLUCOSE F-18
     Indication: Positron emission tomogram
     Route: 042
     Dates: start: 20250811, end: 20250811
  2. OMNIPAQUE [Suspect]
     Active Substance: IOHEXOL
     Indication: Positron emission tomogram
     Route: 042
     Dates: start: 20250811, end: 20250811
  3. INDERAL [Concomitant]
     Active Substance: PROPRANOLOL HYDROCHLORIDE
     Route: 048
     Dates: start: 20250811, end: 20250811

REACTIONS (2)
  - Metastases to central nervous system [Unknown]
  - Muscular weakness [Unknown]

NARRATIVE: CASE EVENT DATE: 20250811
